FAERS Safety Report 8167335-0 (Version None)
Quarter: 2012Q1

REPORT INFORMATION
  Report Type: 
  Country: None (occurrence: None)
  Receive Date: 20120227
  Receipt Date: 20120221
  Transmission Date: 20120608
  Serious: Yes (Hospitalization, Other)
  Sender: FDA-Public Use
  Company Number: US-PFIZER INC-2012046227

PATIENT
  Sex: Female
  Weight: 54.422 kg

DRUGS (2)
  1. LORTAB [Suspect]
     Indication: PAIN
     Dosage: 10/500MG
     Route: 048
  2. LYRICA [Suspect]
     Indication: FIBROMYALGIA
     Dosage: UNK
     Route: 048
     Dates: end: 20111201

REACTIONS (6)
  - MEMORY IMPAIRMENT [None]
  - INAPPROPRIATE SCHEDULE OF DRUG ADMINISTRATION [None]
  - COMA [None]
  - BRAIN INJURY [None]
  - PAIN [None]
  - ROAD TRAFFIC ACCIDENT [None]
